FAERS Safety Report 7881921-4 (Version None)
Quarter: 2011Q4

REPORT INFORMATION
  Report Type: 
  Country: None (occurrence: None)
  Receive Date: 20111101
  Receipt Date: 20110603
  Transmission Date: 20120403
  Serious: No
  Sender: FDA-Public Use
  Company Number: US-AMGEN-USASP2011028837

PATIENT
  Age: 56 Year
  Sex: Male
  Weight: 77.098 kg

DRUGS (2)
  1. METHOTREXATE [Concomitant]
     Dates: start: 20100501
  2. ENBREL [Suspect]
     Indication: RHEUMATOID ARTHRITIS
     Dosage: 50 MG, QWK
     Route: 058
     Dates: start: 20100916

REACTIONS (4)
  - ARTHRALGIA [None]
  - THERAPEUTIC RESPONSE DECREASED [None]
  - SLEEP DISORDER [None]
  - MUSCULOSKELETAL PAIN [None]
